FAERS Safety Report 13641478 (Version 2)
Quarter: 2017Q4

REPORT INFORMATION
  Report Type: Spontaneous
  Country: IT (occurrence: IT)
  Receive Date: 20170612
  Receipt Date: 20171219
  Transmission Date: 20180320
  Serious: Yes (Other)
  Sender: FDA-Public Use
  Company Number: IT-SUN PHARMACEUTICAL INDUSTRIES LTD-2017RR-142729

PATIENT
  Age: 64 Year
  Sex: Female

DRUGS (6)
  1. OXALIPLATIN. [Suspect]
     Active Substance: OXALIPLATIN
     Indication: CHEMOTHERAPY
     Route: 065
  2. SOLDESAM [Concomitant]
     Active Substance: DEXAMETHASONE
  3. SOLDESAM 8 MG/2 ML [Concomitant]
     Active Substance: DEXAMETHASONE
     Indication: PRODUCT USED FOR UNKNOWN INDICATION
     Route: 065
  4. RANIDIL 50 MG/5 ML SOLUZIONE INIETTABILE PER USO ENDOVENOSO [Concomitant]
  5. GRANISETRON [Concomitant]
     Active Substance: GRANISETRON
     Indication: PRODUCT USED FOR UNKNOWN INDICATION
     Route: 065
  6. RANIDIL 50 MG/5 ML [Concomitant]
     Indication: PRODUCT USED FOR UNKNOWN INDICATION
     Route: 017

REACTIONS (4)
  - Formication [Recovered/Resolved]
  - Laryngospasm [Recovered/Resolved]
  - Laryngospasm [Recovered/Resolved]
  - Formication [Recovered/Resolved]

NARRATIVE: CASE EVENT DATE: 20170503
